FAERS Safety Report 10519702 (Version 3)
Quarter: 2014Q4

REPORT INFORMATION
  Report Type: Spontaneous
  Country: FR (occurrence: FR)
  Receive Date: 20141015
  Receipt Date: 20141118
  Transmission Date: 20150528
  Serious: Yes (Hospitalization, Other)
  Sender: FDA-Public Use
  Company Number: FR-PFIZER INC-2014139354

PATIENT
  Age: 41 Year
  Sex: Female
  Weight: 55 kg

DRUGS (1)
  1. SYNAREL [Suspect]
     Active Substance: NAFARELIN ACETATE
     Indication: IN VITRO FERTILISATION
     Dosage: 2 DF, 2X/DAY
     Route: 045
     Dates: start: 20140429, end: 20140513

REACTIONS (4)
  - Umbilical cord prolapse [Unknown]
  - Stillbirth [Unknown]
  - Off label use [Unknown]
  - Oligohydramnios [Unknown]

NARRATIVE: CASE EVENT DATE: 2014
